FAERS Safety Report 6568965-X (Version None)
Quarter: 2010Q1

REPORT INFORMATION
  Report Type: 
  Country: None (occurrence: None)
  Receive Date: 20100203
  Receipt Date: 20100127
  Transmission Date: 20100710
  Serious: Yes (Congenital Anomaly)
  Sender: FDA-Public Use
  Company Number: CA-WYE-G05455010

PATIENT

DRUGS (1)
  1. PRISTIQ [Suspect]
     Dosage: UNKNOWN
     Route: 064

REACTIONS (2)
  - CONGENITAL RENAL DISORDER [None]
  - DRUG EXPOSURE DURING PREGNANCY [None]
